FAERS Safety Report 7776140-6 (Version None)
Quarter: 2011Q3

REPORT INFORMATION
  Report Type: 
  Country: None (occurrence: None)
  Receive Date: 20110926
  Receipt Date: 20110922
  Transmission Date: 20111222
  Serious: Yes (Hospitalization)
  Sender: FDA-Public Use
  Company Number: US-BRISTOL-MYERS SQUIBB COMPANY-15380066

PATIENT
  Age: 70 Year
  Sex: Female

DRUGS (4)
  1. IPILIMUMAB [Suspect]
     Indication: MALIGNANT MELANOMA
     Route: 042
     Dates: start: 20080423, end: 20080625
  2. DEXAMETHASONE [Concomitant]
     Dates: start: 20080718
  3. DIPHENOXYLATE HCL + ATROPINE SULFATE [Concomitant]
     Dates: start: 20080718
  4. LOPERAMIDE HCL [Concomitant]
     Dates: start: 20080718

REACTIONS (3)
  - DIARRHOEA [None]
  - GAIT DISTURBANCE [None]
  - COLITIS [None]
